FAERS Safety Report 5065350-7 (Version None)
Quarter: 2006Q3

REPORT INFORMATION
  Report Type: 
  Country: None (occurrence: None)
  Receive Date: 20060707
  Receipt Date: 20060208
  Transmission Date: 20061208
  Serious: Yes (Other)
  Sender: FDA-Public Use
  Company Number: SUS1-2006-00204

PATIENT
  Sex: Male

DRUGS (1)
  1. PENTASA [Suspect]
     Indication: INFLAMMATORY BOWEL DISEASE

REACTIONS (1)
  - PERICARDITIS [None]
